FAERS Safety Report 9175642 (Version 1)
Quarter: 2012Q4

REPORT INFORMATION
  Report Type: 
  Country: US (occurrence: US)
  Receive Date: 20120913
  Receipt Date: 20120913
  Transmission Date: 20130627
  Serious: No
  Sender: FDA-Public Use
  Company Number: US-009507513-1010USA03450

PATIENT

DRUGS (4)
  1. SUSTIVA [Suspect]
     Dosage: UNK
     Route: 048
  2. ISENTRESS [Suspect]
     Route: 048
  3. REYATAZ [Suspect]
  4. NORVIR [Suspect]

REACTIONS (1)
  - Rash [Unknown]
